FAERS Safety Report 10178625 (Version 1)
Quarter: 2014Q2

REPORT INFORMATION
  Report Type: Spontaneous
  Country: DE (occurrence: DE)
  Receive Date: 20140519
  Receipt Date: 20140519
  Transmission Date: 20141212
  Serious: Yes (Hospitalization)
  Sender: FDA-Public Use
  Company Number: DE-UCBSA-120946

PATIENT
  Age: 56 Year
  Sex: Female

DRUGS (6)
  1. ROTIGOTINE [Suspect]
     Dosage: DOSE UNKNOWN
  2. APOMORPHINE [Concomitant]
  3. L-DOPA [Concomitant]
  4. AMANTADINE [Concomitant]
  5. PIRIBEDIL [Concomitant]
     Dosage: DOSE UNKNOWN;
  6. CARBIDOPA [Concomitant]

REACTIONS (3)
  - Tremor [Recovering/Resolving]
  - Dystonia [Recovering/Resolving]
  - Bradykinesia [Recovering/Resolving]
